FAERS Safety Report 4319319-8 (Version None)
Quarter: 2004Q1

REPORT INFORMATION
  Report Type: 
  Country: None (occurrence: None)
  Receive Date: 20040319
  Receipt Date: 20040310
  Transmission Date: 20041129
  Serious: Yes (Death, Hospitalization)
  Sender: FDA-Public Use
  Company Number: PHBS2004JP03229

PATIENT
  Age: 67 Year
  Sex: Male

DRUGS (4)
  1. FASTIC #AJ [Suspect]
     Route: 048
     Dates: start: 20031117, end: 20031210
  2. ENDOXAN [Suspect]
     Dates: start: 20031202
  3. ALENDRONATE SODIUM [Suspect]
     Route: 048
     Dates: start: 20031031, end: 20031210
  4. TAKEPRON [Suspect]
     Route: 048
     Dates: start: 20031031, end: 20031210

REACTIONS (2)
  - INFECTION [None]
  - TOXIC EPIDERMAL NECROLYSIS [None]
